FAERS Safety Report 14732047 (Version 1)
Quarter: 2018Q2

REPORT INFORMATION
  Report Type: Spontaneous
  Country: US (occurrence: US)
  Receive Date: 20180408
  Receipt Date: 20180408
  Transmission Date: 20180711
  Serious: No
  Sender: FDA-Public Use
  Company Number: US-ASTRAZENECA-2018SE32707

PATIENT
  Age: 49 Year
  Sex: Female

DRUGS (1)
  1. FARXIGA [Suspect]
     Active Substance: DAPAGLIFLOZIN PROPANEDIOL
     Indication: TYPE 2 DIABETES MELLITUS
     Dosage: 10 MG, UNKNOWN
     Route: 048

REACTIONS (2)
  - Urinary incontinence [Recovering/Resolving]
  - Blood pressure abnormal [Unknown]

NARRATIVE: CASE EVENT DATE: 20180312
